FAERS Safety Report 7848633-4 (Version None)
Quarter: 2011Q4

REPORT INFORMATION
  Report Type: 
  Country: None (occurrence: None)
  Receive Date: 20111026
  Receipt Date: 20111014
  Transmission Date: 20120403
  Serious: Yes (Hospitalization)
  Sender: FDA-Public Use
  Company Number: DE-BIOGENIDEC-2011BI039279

PATIENT
  Age: 29 Year
  Sex: Female

DRUGS (6)
  1. MIRTAZAPINE [Concomitant]
     Indication: DEPRESSION
     Route: 048
     Dates: start: 20110202, end: 20110216
  2. ESCITALOPRAM [Concomitant]
     Route: 048
     Dates: start: 20110721
  3. PANTOPRAZOLE [Concomitant]
     Indication: PROPHYLAXIS
     Route: 048
     Dates: start: 20110202, end: 20110216
  4. ESCITALOPRAM [Concomitant]
     Indication: DEPRESSION
     Route: 048
     Dates: start: 20110216, end: 20110420
  5. TYSABRI [Suspect]
     Indication: MULTIPLE SCLEROSIS
     Route: 042
     Dates: start: 20110324, end: 20110420
  6. TYSABRI [Suspect]
     Route: 042
     Dates: start: 20110721

REACTIONS (4)
  - BLOOD ALKALINE PHOSPHATASE INCREASED [None]
  - GAMMA-GLUTAMYLTRANSFERASE INCREASED [None]
  - ASPARTATE AMINOTRANSFERASE INCREASED [None]
  - ALANINE AMINOTRANSFERASE INCREASED [None]
